FAERS Safety Report 24883825 (Version 1)
Quarter: 2025Q1

REPORT INFORMATION
  Report Type: Spontaneous
  Country: US (occurrence: US)
  Receive Date: 20250124
  Receipt Date: 20250124
  Transmission Date: 20250408
  Serious: No
  Sender: INSUD PHARMA
  Company Number: US-INSUD PHARMA-2501US00193

PATIENT

DRUGS (2)
  1. PROGESTERONE [Suspect]
     Active Substance: PROGESTERONE
     Indication: Progesterone decreased
     Route: 048
  2. PROGESTERONE [Suspect]
     Active Substance: PROGESTERONE
     Route: 048
     Dates: start: 2024

REACTIONS (7)
  - Peripheral coldness [Unknown]
  - Hyperhidrosis [Unknown]
  - Dizziness [Unknown]
  - Somnolence [Unknown]
  - Product dose omission issue [Unknown]
  - Product quality issue [Unknown]
  - Product use in unapproved indication [Unknown]

NARRATIVE: CASE EVENT DATE: 20240101
